FAERS Safety Report 5862277-5 (Version None)
Quarter: 2008Q3

REPORT INFORMATION
  Report Type: 
  Country: None (occurrence: None)
  Receive Date: 20080828
  Receipt Date: 20080818
  Transmission Date: 20090109
  Serious: Yes (Hospitalization)
  Sender: FDA-Public Use
  Company Number: BR-NOVOPROD-278765

PATIENT
  Age: 54 Year
  Sex: Female
  Weight: 101 kg

DRUGS (4)
  1. LEVEMIR [Suspect]
     Indication: DIABETES MELLITUS
     Dosage: UNK, UNK
     Dates: start: 20080313
  2. NOVORAPID FLEXPEN [Suspect]
     Indication: DIABETES MELLITUS
     Dosage: 12+16+14 IU/DAILY
     Dates: start: 20080313
  3. OMEPRAZOLE [Concomitant]
     Dosage: 20 MG, UNK
  4. CHLORTHALIDONE [Concomitant]
     Dosage: 50 MG, UNK

REACTIONS (1)
  - OSTEOARTHRITIS [None]
